FAERS Safety Report 16577561 (Version 1)
Quarter: 2019Q3

REPORT INFORMATION
  Report Type: Spontaneous
  Country: RU (occurrence: RU)
  Receive Date: 20190716
  Receipt Date: 20190716
  Transmission Date: 20191004
  Serious: Yes (Other)
  Sender: FDA-Public Use
  Company Number: RU-SA-2019SA188569

PATIENT
  Age: 25 Year
  Sex: Female
  Weight: 47 kg

DRUGS (2)
  1. MYLERAN [Suspect]
     Active Substance: BUSULFAN
     Dosage: 147 / 147MG / 10.8 MG
     Route: 065
     Dates: start: 20180305, end: 20180306
  2. MOZOBIL [Suspect]
     Active Substance: PLERIXAFOR
     Dosage: 10.8 / 147 MG/ 10.8 MG
     Route: 048
     Dates: start: 20180305, end: 20180306

REACTIONS (5)
  - Pulmonary oedema [Not Recovered/Not Resolved]
  - Sarcoidosis [Not Recovered/Not Resolved]
  - Dyspnoea [Not Recovered/Not Resolved]
  - Cardiac failure congestive [Not Recovered/Not Resolved]
  - Palpitations [Not Recovered/Not Resolved]
